FAERS Safety Report 4305035-5 (Version None)
Quarter: 2004Q1

REPORT INFORMATION
  Report Type: 
  Country: None (occurrence: None)
  Receive Date: 20040225
  Receipt Date: 20040225
  Transmission Date: 20041129
  Serious: Yes (Hospitalization)
  Sender: FDA-Public Use
  Company Number: None

PATIENT
  Sex: Female

DRUGS (16)
  1. HEPARIN [Suspect]
     Indication: VENTRICULAR ASSIST DEVICE INSERTION
     Dosage: 1300 UNITS/HR
     Dates: start: 20030904, end: 20031009
  2. HEPARIN [Suspect]
     Indication: VENTRICULAR ASSIST DEVICE INSERTION
     Dosage: 1300 UNITS/HR
     Dates: start: 20031010, end: 20031011
  3. ALBUTEROL [Concomitant]
  4. ALPRAZOLAM [Concomitant]
  5. ASORBIC ACID [Concomitant]
  6. ASPIRIN [Concomitant]
  7. BACITRACIN [Concomitant]
  8. DOCUSATE [Concomitant]
  9. FESO4 [Concomitant]
  10. FOLIC ACID [Concomitant]
  11. IPRATROPIUM BROMIDE [Concomitant]
  12. L;ANSOPROZOLE [Concomitant]
  13. METOLAZONE [Concomitant]
  14. M.V.I. [Concomitant]
  15. PREDNISONE [Concomitant]
  16. ZINC SULFATE [Concomitant]

REACTIONS (15)
  - ACTIVATED PARTIAL THROMBOPLASTIN TIME PROLONGED [None]
  - CARDIAC TAMPONADE [None]
  - EPISTAXIS [None]
  - HAEMATURIA [None]
  - HAEMOGLOBIN DECREASED [None]
  - HAEMORRHAGE [None]
  - HAEMOTHORAX [None]
  - HYPERCAPNIA [None]
  - MASS [None]
  - PERICARDIAL DISEASE [None]
  - PERICARDIAL HAEMORRHAGE [None]
  - PLATELET COUNT DECREASED [None]
  - PLEURAL EFFUSION [None]
  - THROMBOSIS [None]
  - URINE OUTPUT DECREASED [None]
